FAERS Safety Report 11068349 (Version 1)
Quarter: 2015Q2

REPORT INFORMATION
  Report Type: Spontaneous
  Country: JP (occurrence: JP)
  Receive Date: 20150427
  Receipt Date: 20150427
  Transmission Date: 20150821
  Serious: Yes (Hospitalization, Other)
  Sender: FDA-Public Use
  Company Number: JP-PFIZER INC-2015139176

PATIENT
  Age: 78 Year
  Sex: Female
  Weight: 35 kg

DRUGS (1)
  1. METHYLPREDNISOLONE SODIUM SUCCINATE. [Suspect]
     Active Substance: METHYLPREDNISOLONE SODIUM SUCCINATE
     Indication: THROMBOTIC MICROANGIOPATHY

REACTIONS (1)
  - Scleroderma renal crisis [Unknown]

NARRATIVE: CASE EVENT DATE: 201402
